FAERS Safety Report 24690965 (Version 3)
Quarter: 2025Q2

REPORT INFORMATION
  Report Type: Spontaneous
  Country: US (occurrence: US)
  Receive Date: 20241203
  Receipt Date: 20250606
  Transmission Date: 20250716
  Serious: No
  Sender: NOVEN
  Company Number: US-NOVEN PHARMACEUTICALS, INC.-2024-NOV-US000988

PATIENT
  Sex: Female
  Weight: 65.76 kg

DRUGS (3)
  1. ESTRADIOL [Suspect]
     Active Substance: ESTRADIOL
     Indication: Hot flush
     Route: 062
     Dates: start: 2023, end: 2024
  2. ESTRADIOL [Suspect]
     Active Substance: ESTRADIOL
     Indication: Night sweats
  3. ESTRADIOL [Suspect]
     Active Substance: ESTRADIOL
     Indication: Mood swings

REACTIONS (7)
  - Application site erosion [Not Recovered/Not Resolved]
  - Application site rash [Not Recovered/Not Resolved]
  - Dermal absorption impaired [Recovered/Resolved]
  - Adhesive tape use [Recovered/Resolved]
  - Wrong technique in product usage process [Not Recovered/Not Resolved]
  - Product adhesion issue [Recovered/Resolved]
  - Device issue [Recovered/Resolved]

NARRATIVE: CASE EVENT DATE: 20240101
